FAERS Safety Report 12078319 (Version 6)
Quarter: 2016Q3

REPORT INFORMATION
  Report Type: Report from Study
  Country: US (occurrence: US)
  Receive Date: 20160216
  Receipt Date: 20160817
  Transmission Date: 20161109
  Serious: Yes (Other)
  Sender: FDA-Public Use
  Company Number: US-AMGEN-USASL2016015547

PATIENT
  Age: 70 Year
  Sex: Female

DRUGS (1)
  1. ENBREL [Suspect]
     Active Substance: ETANERCEPT
     Indication: RHEUMATOID ARTHRITIS
     Dosage: 50 MG, QWK
     Route: 065
     Dates: start: 20151001

REACTIONS (7)
  - Bladder operation [Unknown]
  - Incorrect drug administration rate [Unknown]
  - Thrombosis [Unknown]
  - Cellulitis [Not Recovered/Not Resolved]
  - Injection site pain [Unknown]
  - Carotid artery disease [Unknown]
  - Arthropathy [Unknown]

NARRATIVE: CASE EVENT DATE: 20151209
